FAERS Safety Report 10480226 (Version 2)
Quarter: 2014Q4

REPORT INFORMATION
  Report Type: Spontaneous
  Country: US (occurrence: US)
  Receive Date: 20140929
  Receipt Date: 20141112
  Transmission Date: 20150528
  Serious: Yes (Death, Life-Threatening, Hospitalization, Disabling, Other)
  Sender: FDA-Public Use
  Company Number: US-009507513-1409USA012727

PATIENT
  Sex: Male
  Weight: 81.63 kg

DRUGS (1)
  1. JANUVIA [Suspect]
     Active Substance: SITAGLIPTIN PHOSPHATE
     Indication: TYPE 2 DIABETES MELLITUS
     Dosage: 100 MG, QD
     Route: 048
     Dates: start: 20071023, end: 20100330

REACTIONS (21)
  - Exploratory operation [Unknown]
  - Lymphadenopathy [Unknown]
  - Carpal tunnel decompression [Unknown]
  - Myocardial infarction [Unknown]
  - Pancreatic carcinoma metastatic [Fatal]
  - Carpal tunnel syndrome [Unknown]
  - Vascular occlusion [Unknown]
  - Stent placement [Unknown]
  - Tumour excision [Unknown]
  - Arthroscopy [Unknown]
  - Gastrooesophageal reflux disease [Unknown]
  - Lymphadenectomy [Unknown]
  - Hypertension [Unknown]
  - Spinal fracture [Unknown]
  - Metastases to lymph nodes [Unknown]
  - Insomnia [Unknown]
  - Carpal tunnel decompression [Unknown]
  - Hypercholesterolaemia [Unknown]
  - Metastases to liver [Unknown]
  - Malignant peritoneal neoplasm [Unknown]
  - Anxiety [Unknown]

NARRATIVE: CASE EVENT DATE: 200711
